FAERS Safety Report 23809080 (Version 5)
Quarter: 2024Q3

REPORT INFORMATION
  Report Type: Spontaneous
  Country: US (occurrence: US)
  Receive Date: 20240502
  Receipt Date: 20240927
  Transmission Date: 20241017
  Serious: Yes (Hospitalization, Other)
  Sender: BIOVITRUM
  Company Number: US-BIOVITRUM-2024-US-006566

PATIENT
  Age: 84 Year
  Sex: Male

DRUGS (3)
  1. VONJO [Suspect]
     Active Substance: PACRITINIB
     Indication: Myeloproliferative neoplasm
     Dosage: TWICE DAILY?100 MG 2 CAPSULES TWICE DAILY. TOTAL DOSE (200 MG)
     Route: 048
     Dates: start: 20240409
  2. VONJO [Suspect]
     Active Substance: PACRITINIB
     Dosage: DAILY
     Route: 048
     Dates: start: 20240409
  3. VONJO [Suspect]
     Active Substance: PACRITINIB
     Dosage: TAKE 2 CAPSULES TWICE DAILY. TOTAL DOSE (200MG)
     Route: 048
     Dates: start: 20240409

REACTIONS (11)
  - Off label use [Not Recovered/Not Resolved]
  - Diarrhoea [Unknown]
  - Asthenia [Unknown]
  - Hot flush [Unknown]
  - Bone pain [Unknown]
  - Gait disturbance [Unknown]
  - Fatigue [Unknown]
  - Cancer fatigue [Unknown]
  - Adverse drug reaction [Unknown]
  - Syncope [Unknown]
  - COVID-19 [Unknown]

NARRATIVE: CASE EVENT DATE: 20240409
